FAERS Safety Report 5482230-3 (Version None)
Quarter: 2007Q4

REPORT INFORMATION
  Report Type: 
  Country: None (occurrence: None)
  Receive Date: 20071011
  Receipt Date: 20071001
  Transmission Date: 20080405
  Serious: Yes (Other)
  Sender: FDA-Public Use
  Company Number: AU-BRISTOL-MYERS SQUIBB COMPANY-13933023

PATIENT
  Age: 83 Year
  Sex: Male

DRUGS (6)
  1. PRAVASTATIN SODIUM [Suspect]
  2. FUROSEMIDE [Suspect]
  3. RANITIDINE HCL [Suspect]
  4. DIGOXIN [Suspect]
  5. RAMIPRIL [Suspect]
  6. ASPIRIN [Suspect]

REACTIONS (2)
  - DRUG TOXICITY [None]
  - INTERSTITIAL LUNG DISEASE [None]
